FAERS Safety Report 9136443 (Version 1)
Quarter: 2013Q1

REPORT INFORMATION
  Report Type: Spontaneous
  Country: US (occurrence: US)
  Receive Date: 20130219
  Receipt Date: 20130219
  Transmission Date: 20140127
  Serious: No
  Sender: FDA-Public Use
  Company Number: US-BRISTOL-MYERS SQUIBB COMPANY-16837429

PATIENT
  Age: 51 Year
  Sex: Female
  Weight: 136 kg

DRUGS (8)
  1. ORENCIA [Suspect]
     Indication: RHEUMATOID ARTHRITIS
     Route: 058
     Dates: start: 20120513
  2. AMBIEN [Concomitant]
  3. VITAMIN D [Concomitant]
  4. CLONIDINE [Concomitant]
  5. MECLIZINE [Concomitant]
  6. VITAMIN B12 [Concomitant]
  7. SULFASALAZINE [Concomitant]
  8. POTASSIUM [Concomitant]

REACTIONS (6)
  - Contusion [Not Recovered/Not Resolved]
  - Glossodynia [Not Recovered/Not Resolved]
  - Headache [Not Recovered/Not Resolved]
  - Nausea [Not Recovered/Not Resolved]
  - Insomnia [Not Recovered/Not Resolved]
  - Anxiety [Not Recovered/Not Resolved]
